FAERS Safety Report 25372061 (Version 1)
Quarter: 2025Q2

REPORT INFORMATION
  Report Type: Spontaneous
  Country: NL (occurrence: NL)
  Receive Date: 20250529
  Receipt Date: 20250529
  Transmission Date: 20250716
  Serious: Yes (Death, Hospitalization, Other)
  Sender: CELLTRION
  Company Number: NL-AMAROX PHARMA-AMR2024NL04403

PATIENT

DRUGS (4)
  1. TRASTUZUMAB [Suspect]
     Active Substance: TRASTUZUMAB
     Indication: Product used for unknown indication
     Route: 065
  2. CAPECITABINE [Suspect]
     Active Substance: CAPECITABINE
     Indication: Gastric cancer
     Route: 065
  3. CAPECITABINE [Suspect]
     Active Substance: CAPECITABINE
     Indication: Metastasis
     Route: 065
  4. OXALIPLATIN [Suspect]
     Active Substance: OXALIPLATIN
     Indication: Product used for unknown indication
     Route: 065

REACTIONS (2)
  - Leukoencephalopathy [Fatal]
  - Toxicity to various agents [Fatal]
